FAERS Safety Report 12156094 (Version 3)
Quarter: 2016Q2

REPORT INFORMATION
  Report Type: Spontaneous
  Country: JP (occurrence: JP)
  Receive Date: 20160307
  Receipt Date: 20160411
  Transmission Date: 20160815
  Serious: Yes (Death, Hospitalization)
  Sender: FDA-Public Use
  Company Number: JP-ELI_LILLY_AND_COMPANY-JP201602008161

PATIENT
  Age: 68 Year
  Sex: Female
  Weight: 39.4 kg

DRUGS (9)
  1. FORTEO [Suspect]
     Active Substance: TERIPARATIDE
     Indication: OSTEOPOROSIS
     Dosage: 20 UG, QD
     Route: 058
     Dates: start: 20151107, end: 20160217
  2. MADOPAR [Concomitant]
     Active Substance: BENSERAZIDE HYDROCHLORIDE\LEVODOPA
     Indication: PARKINSON^S DISEASE
     Dosage: UNK
     Route: 048
     Dates: start: 201102, end: 201203
  3. MADOPAR [Concomitant]
     Active Substance: BENSERAZIDE HYDROCHLORIDE\LEVODOPA
     Dosage: UNK
     Route: 048
     Dates: start: 201203, end: 20160210
  4. EXCEGRAN [Concomitant]
     Active Substance: ZONISAMIDE
     Dosage: UNK
     Route: 048
     Dates: start: 201305, end: 20160210
  5. SENNOSIDE                          /00571901/ [Concomitant]
     Active Substance: SENNOSIDES A AND B
     Indication: CONSTIPATION
     Dosage: UNK
     Route: 048
     Dates: end: 20160210
  6. MAGMITT [Concomitant]
     Active Substance: MAGNESIUM OXIDE
     Indication: CONSTIPATION
     Dosage: UNK
     Route: 048
     Dates: end: 20160210
  7. CEFAZOLIN [Concomitant]
     Active Substance: CEFAZOLIN
     Dosage: 1 G, BID
     Dates: start: 20160114, end: 20160115
  8. COMTAN [Concomitant]
     Active Substance: ENTACAPONE
     Indication: PARKINSON^S DISEASE
     Dosage: UNK
     Route: 048
     Dates: start: 201412, end: 20160210
  9. URSO [Concomitant]
     Active Substance: URSODIOL
     Indication: HEPATITIS C
     Dosage: 200 MG, TID
     Route: 048
     Dates: start: 201505, end: 20160210

REACTIONS (7)
  - Pneumonia aspiration [Not Recovered/Not Resolved]
  - Decreased appetite [Not Recovered/Not Resolved]
  - Hypoglycaemia [Unknown]
  - Pneumonia [Recovered/Resolved]
  - Hypercalcaemia [Recovering/Resolving]
  - Disseminated intravascular coagulation [Fatal]
  - Persecutory delusion [Unknown]

NARRATIVE: CASE EVENT DATE: 20160121
